FAERS Safety Report 21617801 (Version 2)
Quarter: 2022Q4

REPORT INFORMATION
  Report Type: Spontaneous
  Country: US (occurrence: US)
  Receive Date: 20221119
  Receipt Date: 20221208
  Transmission Date: 20230113
  Serious: No
  Sender: FDA-Public Use
  Company Number: US-002147023-NVSC2022US258612

PATIENT
  Sex: Female

DRUGS (1)
  1. XIIDRA [Suspect]
     Active Substance: LIFITEGRAST
     Indication: Product used for unknown indication
     Dosage: 5 %, BID
     Route: 047

REACTIONS (10)
  - Dysphonia [Unknown]
  - Hypoaesthesia [Unknown]
  - Feeling abnormal [Unknown]
  - Burning sensation [Unknown]
  - Speech disorder [Unknown]
  - Vision blurred [Unknown]
  - Hypersensitivity [Unknown]
  - Eye irritation [Unknown]
  - Lacrimation increased [Unknown]
  - Foreign body reaction [Unknown]
